FAERS Safety Report 10048386 (Version 2)
Quarter: 2014Q3

REPORT INFORMATION
  Report Type: Spontaneous
  Country: US (occurrence: US)
  Receive Date: 20140331
  Receipt Date: 20140703
  Transmission Date: 20150326
  Serious: Yes (Death, Hospitalization, Other)
  Sender: FDA-Public Use
  Company Number: US-MERCK-1403USA013485

PATIENT
  Sex: Female
  Weight: 118.37 kg

DRUGS (2)
  1. JANUVIA [Suspect]
     Active Substance: SITAGLIPTIN PHOSPHATE
     Dosage: 50 MG, DAILY
     Route: 048
     Dates: start: 20100921, end: 201212
  2. JANUVIA [Suspect]
     Active Substance: SITAGLIPTIN PHOSPHATE
     Indication: TYPE 2 DIABETES MELLITUS
     Dosage: 100 MG, DAILY
     Route: 048
     Dates: start: 20080108

REACTIONS (63)
  - Upper gastrointestinal haemorrhage [Recovered/Resolved]
  - Multi-organ failure [Fatal]
  - Chest pain [Unknown]
  - Dyspnoea [Unknown]
  - Hypoglycaemia [Recovered/Resolved]
  - Hypothermia [Unknown]
  - Gastric ulcer [Unknown]
  - Neuropathy peripheral [Unknown]
  - Cardiac failure congestive [Unknown]
  - Chronic obstructive pulmonary disease [Unknown]
  - Sleep apnoea syndrome [Unknown]
  - Sepsis [Unknown]
  - Tracheostomy [Unknown]
  - Sepsis [Unknown]
  - Renal failure acute [Unknown]
  - Atrial fibrillation [Not Recovered/Not Resolved]
  - Vaginal haemorrhage [Recovered/Resolved]
  - Varicose vein operation [Unknown]
  - Radiofrequency ablation of oesophagus [Unknown]
  - Musculoskeletal pain [Unknown]
  - Gastrointestinal haemorrhage [Recovered/Resolved]
  - Pain [Not Recovered/Not Resolved]
  - Abdominal pain [Unknown]
  - Respiratory failure [Unknown]
  - Blood disorder [Unknown]
  - Medical device complication [Unknown]
  - Peptic ulcer [Unknown]
  - Peripheral venous disease [Unknown]
  - Cardiac failure congestive [Not Recovered/Not Resolved]
  - Pneumonia [Recovered/Resolved]
  - Duodenal sphincterotomy [Unknown]
  - Acute respiratory failure [Recovered/Resolved]
  - Pancreatitis [Unknown]
  - Cholecystitis acute [Unknown]
  - Cholecystitis [Unknown]
  - Helicobacter infection [Unknown]
  - Pneumonia [Unknown]
  - Somnolence [Unknown]
  - Chronic obstructive pulmonary disease [Unknown]
  - Abscess limb [Unknown]
  - Constipation [Unknown]
  - Bile duct stent insertion [Unknown]
  - Urinary tract infection [Unknown]
  - Pancreatic carcinoma metastatic [Fatal]
  - Respiratory failure [Unknown]
  - Renal failure chronic [Not Recovered/Not Resolved]
  - Adverse drug reaction [Unknown]
  - Haemorrhage [Unknown]
  - Chest pain [Unknown]
  - Skin ulcer [Unknown]
  - Skin ulcer [Not Recovered/Not Resolved]
  - Haematuria [Unknown]
  - Haemorrhagic anaemia [Recovered/Resolved]
  - Bile duct stent insertion [Unknown]
  - Cerebrovascular accident [Unknown]
  - Anaemia of chronic disease [Not Recovered/Not Resolved]
  - Septic shock [Unknown]
  - Gastrooesophageal reflux disease [Unknown]
  - Cellulitis [Unknown]
  - Coronary artery disease [Unknown]
  - Nasal operation [Unknown]
  - Vulvovaginal candidiasis [Unknown]
  - Cardiac failure congestive [Unknown]

NARRATIVE: CASE EVENT DATE: 20080410
